FAERS Safety Report 7260148-3 (Version None)
Quarter: 2011Q1

REPORT INFORMATION
  Report Type: 
  Country: None (occurrence: None)
  Receive Date: 20110130
  Receipt Date: 20101007
  Transmission Date: 20110831
  Serious: No
  Sender: FDA-Public Use
  Company Number: US-ABBOTT-10P-163-0676701-00

PATIENT
  Age: 30 Year
  Sex: Female

DRUGS (5)
  1. PENTASA [Concomitant]
     Indication: CROHN'S DISEASE
  2. PROTONIX [Concomitant]
     Indication: PRODUCT USED FOR UNKNOWN INDICATION
  3. HUMIRA [Suspect]
     Indication: CROHN'S DISEASE
     Dates: start: 20100801
  4. CYMBALTA [Concomitant]
     Indication: POSTPARTUM DEPRESSION
  5. SYNTHROID [Concomitant]
     Indication: THYROID DISORDER

REACTIONS (1)
  - ARTHRALGIA [None]
